FAERS Safety Report 15967937 (Version 1)
Quarter: 2019Q1

REPORT INFORMATION
  Report Type: Spontaneous
  Country: US (occurrence: US)
  Receive Date: 20190215
  Receipt Date: 20190215
  Transmission Date: 20190418
  Serious: Yes (Hospitalization)
  Sender: FDA-Public Use
  Company Number: None

PATIENT
  Age: 34 Year
  Sex: Male
  Weight: 231.3 kg

DRUGS (7)
  1. LISINOPRIL. [Concomitant]
     Active Substance: LISINOPRIL
  2. HYDROMORPHINEN [Concomitant]
  3. WELLBUTRIAKEN [Concomitant]
  4. AMBIEN [Concomitant]
     Active Substance: ZOLPIDEM TARTRATE
  5. KRATOM [Suspect]
     Active Substance: HERBALS\MITRAGYNINE
     Indication: DRUG DEPENDENCE
     Dosage: ?          QUANTITY:3 CAPSULE(S);?
     Route: 060
  6. TYLENOL [Concomitant]
     Active Substance: ACETAMINOPHEN
  7. KLONOPIN [Concomitant]
     Active Substance: CLONAZEPAM

REACTIONS (5)
  - Renal failure [None]
  - Lung disorder [None]
  - Rhabdomyolysis [None]
  - Overdose [None]
  - Pneumonia [None]

NARRATIVE: CASE EVENT DATE: 20100129
